FAERS Safety Report 12975201 (Version 4)
Quarter: 2016Q4

REPORT INFORMATION
  Report Type: Report from Study
  Country: BR (occurrence: BR)
  Receive Date: 20161125
  Receipt Date: 20161227
  Transmission Date: 20170207
  Serious: Yes (Life-Threatening, Hospitalization, Other)
  Sender: FDA-Public Use
  Company Number: BR-ALEXION-A201609095

PATIENT
  Age: 34 Year
  Sex: Male

DRUGS (2)
  1. SOLIRIS [Suspect]
     Active Substance: ECULIZUMAB
     Indication: PAROXYSMAL NOCTURNAL HAEMOGLOBINURIA
     Dosage: 600 MG, QW
     Route: 042
     Dates: start: 20130917, end: 20131010
  2. SOLIRIS [Suspect]
     Active Substance: ECULIZUMAB
     Dosage: 900 MG, Q2W
     Route: 042
     Dates: start: 20161018

REACTIONS (17)
  - Haemolysis [Recovering/Resolving]
  - Abdominal pain [Recovering/Resolving]
  - Faeces discoloured [Unknown]
  - Headache [Unknown]
  - Haemorrhoids [Recovering/Resolving]
  - Lung infiltration [Recovered/Resolved]
  - Gastrointestinal haemorrhage [Recovering/Resolving]
  - Hepatitis cholestatic [Unknown]
  - Laboratory test abnormal [Unknown]
  - Jaundice [Unknown]
  - Anal haemorrhage [Unknown]
  - Syncope [Unknown]
  - Inappropriate schedule of drug administration [Not Recovered/Not Resolved]
  - Chromaturia [Unknown]
  - Pain [Unknown]
  - Asthenia [Unknown]
  - Lung infection [Recovered/Resolved]

NARRATIVE: CASE EVENT DATE: 20161018
